FAERS Safety Report 17363220 (Version 10)
Quarter: 2020Q3

REPORT INFORMATION
  Report Type: Report from Study
  Country: AU (occurrence: AU)
  Receive Date: 20200203
  Receipt Date: 20200708
  Transmission Date: 20201102
  Serious: Yes (Life-Threatening, Hospitalization, Other)
  Sender: FDA-Public Use
  Company Number: AU-EXELIXIS-XL18420027087

PATIENT
  Age: 73 Year
  Sex: Male
  Weight: 103 kg

DRUGS (17)
  1. CRESTOR [Concomitant]
     Active Substance: ROSUVASTATIN CALCIUM
  2. ENDONE [Concomitant]
     Active Substance: OXYCODONE HYDROCHLORIDE
  3. PREDNISOLONE. [Concomitant]
     Active Substance: PREDNISOLONE
  4. PANAMAX [Concomitant]
     Active Substance: ACETAMINOPHEN
  5. TEMAZEPAM. [Concomitant]
     Active Substance: TEMAZEPAM
  6. CANDESARTAN AN [Concomitant]
  7. XL184 [Suspect]
     Active Substance: CABOZANTINIB
     Indication: RENAL CELL CARCINOMA
     Dosage: 40 MG, QD
     Route: 048
     Dates: start: 20191216
  8. DAPSONE. [Concomitant]
     Active Substance: DAPSONE
  9. LACTULOSE. [Concomitant]
     Active Substance: LACTULOSE
  10. LORATADINE. [Concomitant]
     Active Substance: LORATADINE
  11. CALCIUM CARBONATE. [Concomitant]
     Active Substance: CALCIUM CARBONATE
  12. IPILIMUMAB [Suspect]
     Active Substance: IPILIMUMAB
     Indication: RENAL CELL CARCINOMA
     Dosage: 1 MG/KG, Q3WEEKS, 4 DOSES
     Route: 042
     Dates: start: 20191216
  13. TARGIN [Concomitant]
     Active Substance: NALOXONE HYDROCHLORIDE\OXYCODONE HYDROCHLORIDE
  14. HYDROCORTISONE. [Concomitant]
     Active Substance: HYDROCORTISONE
  15. FUROSEMIDE. [Concomitant]
     Active Substance: FUROSEMIDE
  16. NIVOLUMAB [Suspect]
     Active Substance: NIVOLUMAB
     Indication: RENAL CELL CARCINOMA
     Dosage: 3 MG/KG, Q3WEEKS, 4 DOSES
     Route: 042
     Dates: start: 20191216
  17. PARACETAMOL SANDOZ [Concomitant]
     Active Substance: ACETAMINOPHEN

REACTIONS (5)
  - Immune-mediated hepatitis [Not Recovered/Not Resolved]
  - Immune-mediated nephritis [Not Recovered/Not Resolved]
  - Thrombocytopenia [Not Recovered/Not Resolved]
  - Autoimmune haemolytic anaemia [Recovering/Resolving]
  - Immune-mediated hepatitis [Recovering/Resolving]

NARRATIVE: CASE EVENT DATE: 20200127
